FAERS Safety Report 24765747 (Version 4)
Quarter: 2025Q1

REPORT INFORMATION
  Report Type: Spontaneous
  Country: BR (occurrence: BR)
  Receive Date: 20241223
  Receipt Date: 20250103
  Transmission Date: 20250409
  Serious: Yes (Hospitalization, Other)
  Sender: MERCK
  Company Number: BR-009507513-2412BRA007472

PATIENT
  Age: 80 Year
  Sex: Female
  Weight: 47 kg

DRUGS (4)
  1. JANUMET [Suspect]
     Active Substance: METFORMIN HYDROCHLORIDE\SITAGLIPTIN PHOSPHATE
     Indication: Diabetes mellitus
     Dosage: 1000/50 MG; 2 TABLETS A DAY ? 1 IN THE MORNING AND 1 IN THE AFTERNOON
     Route: 048
     Dates: start: 2016
  2. XARELTO [Concomitant]
     Active Substance: RIVAROXABAN
     Indication: Thrombosis prophylaxis
  3. LOSARTAN [Concomitant]
     Active Substance: LOSARTAN
     Indication: Blood cholesterol increased
     Dosage: 20 MILLIGRAM, QPM
  4. NEUTROFER [FERROGLYCINATE CHELATE] [Concomitant]
     Indication: Anaemia

REACTIONS (16)
  - Femur fracture [Unknown]
  - Femur fracture [Unknown]
  - Femur fracture [Unknown]
  - Transfusion [Unknown]
  - Knee arthroplasty [Unknown]
  - Road traffic accident [Unknown]
  - Fall [Unknown]
  - Anaemia [Unknown]
  - Renal disorder [Unknown]
  - Blood creatinine decreased [Unknown]
  - Blood cholesterol increased [Unknown]
  - Hypertension [Unknown]
  - Swelling [Unknown]
  - Post procedural swelling [Unknown]
  - Decreased appetite [Unknown]
  - Economic problem [Unknown]

NARRATIVE: CASE EVENT DATE: 20220101
